FAERS Safety Report 5196199-2 (Version None)
Quarter: 2006Q4

REPORT INFORMATION
  Report Type: 
  Country: None (occurrence: None)
  Receive Date: 20061221
  Receipt Date: 20061211
  Transmission Date: 20070319
  Serious: Yes (Other)
  Sender: FDA-Public Use
  Company Number: IT-1160139

PATIENT
  Age: 48 Year
  Sex: Male

DRUGS (2)
  1. TOBRADEX [Suspect]
     Indication: CONJUNCTIVITIS
     Dosage: EYE DROPS OPHTHALMIC
     Route: 047
     Dates: start: 20060418, end: 20060419
  2. DICLOTEARS(DICLOFENAC SODIUM) [Concomitant]

REACTIONS (3)
  - CONJUNCTIVAL HAEMORRHAGE [None]
  - EYELID OEDEMA [None]
  - PERIORBITAL HAEMATOMA [None]
